FAERS Safety Report 19410821 (Version 1)
Quarter: 2021Q2

REPORT INFORMATION
  Report Type: Spontaneous
  Country: US (occurrence: US)
  Receive Date: 20210613
  Receipt Date: 20210613
  Transmission Date: 20210717
  Serious: No
  Sender: FDA-Public Use
  Company Number: None

PATIENT
  Sex: Male

DRUGS (1)
  1. HUMIRA [Suspect]
     Active Substance: ADALIMUMAB
     Indication: HIDRADENITIS
     Dosage: 40MG EVERY 7 DAYS SQ
     Route: 058
     Dates: start: 20210312

REACTIONS (5)
  - Device malfunction [None]
  - Wrong technique in product usage process [None]
  - Extra dose administered [None]
  - Product dose omission issue [None]
  - Confusional state [None]
